FAERS Safety Report 4469925-5 (Version None)
Quarter: 2004Q4

REPORT INFORMATION
  Report Type: 
  Country: None (occurrence: None)
  Receive Date: 20041008
  Receipt Date: 20040927
  Transmission Date: 20050328
  Serious: Yes (Other)
  Sender: FDA-Public Use
  Company Number: PHFR2004GB03658

PATIENT
  Age: 9 Year
  Sex: Male

DRUGS (2)
  1. VOLTAREN [Suspect]
     Indication: POSTOPERATIVE ANALGESIA
     Route: 030
     Dates: start: 19910529
  2. ANAESTHETICS [Concomitant]

REACTIONS (2)
  - DERMATITIS EXFOLIATIVE [None]
  - INJECTION SITE NECROSIS [None]
